FAERS Safety Report 7669982-9 (Version None)
Quarter: 2011Q3

REPORT INFORMATION
  Report Type: 
  Country: None (occurrence: None)
  Receive Date: 20110808
  Receipt Date: 20110726
  Transmission Date: 20111222
  Serious: Yes (Hospitalization, Other)
  Sender: FDA-Public Use
  Company Number: US-BAYER-2011-064908

PATIENT
  Age: 17 Year
  Sex: Male

DRUGS (2)
  1. CLARAVIS [Suspect]
     Dosage: 40-60 MG
     Route: 048
     Dates: start: 20091001, end: 20100801
  2. ALEVE (CAPLET) [Suspect]
     Indication: ARTHRALGIA

REACTIONS (2)
  - SPLENIC RUPTURE [None]
  - SPLENOMEGALY [None]
